FAERS Safety Report 25196334 (Version 2)
Quarter: 2025Q2

REPORT INFORMATION
  Report Type: Report from Study
  Country: CA (occurrence: CA)
  Receive Date: 20250415
  Receipt Date: 20250418
  Transmission Date: 20250717
  Serious: Yes (Other)
  Sender: TAKEDA
  Company Number: CA-TAKEDA-2018TUS019927

PATIENT
  Age: 60 Year
  Sex: Female

DRUGS (39)
  1. VEDOLIZUMAB [Suspect]
     Active Substance: VEDOLIZUMAB
     Indication: Colitis ulcerative
  2. VEDOLIZUMAB [Suspect]
     Active Substance: VEDOLIZUMAB
  3. VEDOLIZUMAB [Suspect]
     Active Substance: VEDOLIZUMAB
  4. VEDOLIZUMAB [Suspect]
     Active Substance: VEDOLIZUMAB
  5. VEDOLIZUMAB [Suspect]
     Active Substance: VEDOLIZUMAB
  6. VEDOLIZUMAB [Suspect]
     Active Substance: VEDOLIZUMAB
  7. VEDOLIZUMAB [Suspect]
     Active Substance: VEDOLIZUMAB
  8. VEDOLIZUMAB [Suspect]
     Active Substance: VEDOLIZUMAB
  9. VEDOLIZUMAB [Suspect]
     Active Substance: VEDOLIZUMAB
  10. VEDOLIZUMAB [Suspect]
     Active Substance: VEDOLIZUMAB
  11. VEDOLIZUMAB [Suspect]
     Active Substance: VEDOLIZUMAB
  12. VEDOLIZUMAB [Suspect]
     Active Substance: VEDOLIZUMAB
  13. VEDOLIZUMAB [Suspect]
     Active Substance: VEDOLIZUMAB
  14. VEDOLIZUMAB [Suspect]
     Active Substance: VEDOLIZUMAB
  15. VEDOLIZUMAB [Suspect]
     Active Substance: VEDOLIZUMAB
  16. ZOPICLONE [Concomitant]
     Active Substance: ZOPICLONE
     Indication: Sleep disorder
  17. PANTOPRAZOLE [Concomitant]
     Active Substance: PANTOPRAZOLE
     Dosage: 40 MILLIGRAM, BID
     Dates: start: 2006
  18. AMITRIPTYLINE [Concomitant]
     Active Substance: AMITRIPTYLINE
     Dosage: 50 MILLIGRAM, QD
     Dates: start: 2006
  19. ATIVAN [Concomitant]
     Active Substance: LORAZEPAM
     Indication: Anxiety
     Dosage: 0.5 MILLIGRAM, QD
  20. BETAMETHASONE [Concomitant]
     Active Substance: BETAMETHASONE
     Indication: Ear infection fungal
  21. BETAMETHASONE [Concomitant]
     Active Substance: BETAMETHASONE
     Indication: Fungal foot infection
  22. BETAMETHASONE [Concomitant]
     Active Substance: BETAMETHASONE
     Indication: Skin disorder
  23. CLOBETASOL [Concomitant]
     Active Substance: CLOBETASOL
     Indication: Oral disorder
  24. CLOTRIMAZOLE [Concomitant]
     Active Substance: CLOTRIMAZOLE
     Indication: Oral disorder
     Route: 061
  25. NYSTATIN [Concomitant]
     Active Substance: NYSTATIN
     Indication: Skin lesion
  26. DEXAMETHASONE [Concomitant]
     Active Substance: DEXAMETHASONE
     Indication: Skin lesion
  27. VOLTAREN [Concomitant]
     Active Substance: DICLOFENAC SODIUM
     Indication: Fibromyalgia
     Route: 061
  28. OMEGA 3 [Concomitant]
     Active Substance: CAPSAICIN
     Dosage: UNK UNK, QD
  29. ESCITALOPRAM [Concomitant]
     Active Substance: ESCITALOPRAM OXALATE
     Indication: Anxiety
     Dosage: 10 MILLIGRAM, QD
  30. RANITIDINE [Concomitant]
     Active Substance: RANITIDINE
     Dosage: 150 MILLIGRAM, QD
  31. LAMISIL [Concomitant]
     Active Substance: TERBINAFINE HYDROCHLORIDE
     Indication: Tinea pedis
  32. VALACYCLOVIR HYDROCHLORIDE [Concomitant]
     Active Substance: VALACYCLOVIR HYDROCHLORIDE
  33. DOMPERIDONE [Concomitant]
     Active Substance: DOMPERIDONE
  34. CANNABIS SATIVA SUBSP. INDICA TOP [Concomitant]
     Active Substance: CANNABIS SATIVA SUBSP. INDICA TOP
     Indication: Fibromyalgia
  35. BACLOFEN [Concomitant]
     Active Substance: BACLOFEN
     Indication: Fibromyalgia
     Dosage: UNK UNK, MONTHLY
  36. GABAPENTIN [Concomitant]
     Active Substance: GABAPENTIN
     Indication: Fibromyalgia
     Dosage: UNK UNK, MONTHLY
  37. KETAMINE [Concomitant]
     Active Substance: KETAMINE
     Indication: Fibromyalgia
     Dosage: UNK UNK, MONTHLY
  38. TERBINAFINE [Concomitant]
     Active Substance: TERBINAFINE
     Indication: Tinea pedis
  39. Dexo [Concomitant]

REACTIONS (6)
  - Renal failure [Unknown]
  - Blood cholesterol increased [Unknown]
  - Gout [Unknown]
  - Asthma [Unknown]
  - Anaemia [Unknown]
  - Blood pressure increased [Unknown]

NARRATIVE: CASE EVENT DATE: 20180614
